FAERS Safety Report 17429339 (Version 1)
Quarter: 2020Q1

REPORT INFORMATION
  Report Type: Spontaneous
  Country: US (occurrence: US)
  Receive Date: 20200203
  Receipt Date: 20200203
  Transmission Date: 20200409
  Serious: No
  Sender: FDA-Public Use
  Company Number: None

PATIENT
  Age: 63 Year
  Sex: Male

DRUGS (1)
  1. ACTEMRA [Suspect]
     Active Substance: TOCILIZUMAB
     Dosage: ?          OTHER FREQUENCY:UNKNOWN;?
     Route: 058
     Dates: start: 201910

REACTIONS (4)
  - Hepatic enzyme increased [None]
  - Blindness unilateral [None]
  - Transferrin saturation increased [None]
  - Eye disorder [None]

NARRATIVE: CASE EVENT DATE: 20191001
